FAERS Safety Report 5468179-0 (Version None)
Quarter: 2007Q3

REPORT INFORMATION
  Report Type: 
  Country: None (occurrence: None)
  Receive Date: 20070926
  Receipt Date: 20070918
  Transmission Date: 20080115
  Serious: Yes (Other)
  Sender: FDA-Public Use
  Company Number: GB-ASTRAZENECA-2007GB01932

PATIENT

DRUGS (2)
  1. TAMOXIFEN CITRATE [Suspect]
     Route: 048
  2. HERCEPTIN [Suspect]

REACTIONS (1)
  - PERICARDIAL DISEASE [None]
